FAERS Safety Report 6492089-3 (Version None)
Quarter: 2009Q4

REPORT INFORMATION
  Report Type: 
  Country: None (occurrence: None)
  Receive Date: 20091125
  Receipt Date: 20090428
  Transmission Date: 20100525
  Serious: Yes (Other)
  Sender: FDA-Public Use
  Company Number: 2009BH007516

PATIENT
  Age: 48 Year
  Sex: Female

DRUGS (13)
  1. DIANEAL [Suspect]
     Indication: PERITONEAL DIALYSIS
     Dosage: 11.5 L ; EVERY DAY ; IP
     Route: 033
     Dates: start: 20080801, end: 20090301
  2. ZOLPIDEM [Concomitant]
  3. ASPIRIN [Concomitant]
  4. CARVEDILOL [Concomitant]
  5. COLACE [Concomitant]
  6. HYDRALAZINE [Concomitant]
  7. NEPHRO-VITE [Concomitant]
  8. AMLODIPINE [Concomitant]
  9. PHOSLO [Concomitant]
  10. PREDNISONE [Concomitant]
  11. SENSIPAR [Concomitant]
  12. ACETAMINOPHEN [Concomitant]
  13. ZETIA [Concomitant]

REACTIONS (1)
  - PERITONITIS BACTERIAL [None]
